FAERS Safety Report 5772632-X (Version None)
Quarter: 2008Q2

REPORT INFORMATION
  Report Type: 
  Country: None (occurrence: None)
  Receive Date: 20080613
  Receipt Date: 20080603
  Transmission Date: 20081010
  Serious: Yes (Other)
  Sender: FDA-Public Use
  Company Number: JP-PFIZER INC-2008049509

PATIENT
  Age: 45 Year
  Sex: Male

DRUGS (4)
  1. GABAPEN [Suspect]
     Indication: EPILEPSY
     Dosage: DAILY DOSE:1200MG
     Route: 048
  2. TEGRETOL [Concomitant]
     Indication: EPILEPSY
     Route: 048
  3. ALEVIATIN [Concomitant]
     Indication: EPILEPSY
  4. MYSTAN [Concomitant]
     Indication: EPILEPSY
     Route: 048

REACTIONS (4)
  - DIZZINESS [None]
  - DYSSTASIA [None]
  - IMPAIRED WORK ABILITY [None]
  - VISION BLURRED [None]
